FAERS Safety Report 9660159 (Version 6)
Quarter: 2014Q2

REPORT INFORMATION
  Report Type: Spontaneous
  Country: PL (occurrence: PL)
  Receive Date: 20131031
  Receipt Date: 20140626
  Transmission Date: 20141212
  Serious: Yes (Death, Life-Threatening, Hospitalization, Other)
  Sender: FDA-Public Use
  Company Number: PL-CELGENEUS-129-21880-13093205

PATIENT
  Age: 83 Year
  Sex: Male
  Weight: 95 kg

DRUGS (16)
  1. REVLIMID [Suspect]
     Indication: PLASMA CELL MYELOMA
     Dosage: 25 MILLIGRAM
     Route: 048
     Dates: start: 20120511
  2. REVLIMID [Suspect]
     Dosage: 25 MILLIGRAM
     Route: 048
     Dates: end: 20131004
  3. REVLIMID [Suspect]
     Dosage: 25 MILLIGRAM
     Route: 048
     Dates: end: 20130912
  4. ELOTUZUMAB [Suspect]
     Indication: PLASMA CELL MYELOMA
     Dosage: 940 MILLIGRAM
     Route: 041
     Dates: start: 20120511
  5. ELOTUZUMAB [Suspect]
     Dosage: 940 MILLIGRAM
     Route: 041
     Dates: end: 20131004
  6. ELOTUZUMAB [Suspect]
     Dosage: 940 MILLIGRAM
     Route: 041
     Dates: end: 20130830
  7. DEXAMETHASONE [Suspect]
     Indication: PLASMA CELL MYELOMA
     Dosage: 20 MILLIGRAM
     Route: 048
     Dates: start: 20120510
  8. DEXAMETHASONE [Suspect]
     Dosage: 20 MILLIGRAM
     Route: 048
     Dates: end: 20131004
  9. DEXAMETHASONE [Suspect]
     Dosage: 8 MILLIGRAM
     Route: 041
     Dates: start: 20120511
  10. DEXAMETHASONE [Suspect]
     Dosage: 8 MILLIGRAM
     Route: 041
     Dates: end: 20131004
  11. DEXAMETHASONE [Suspect]
     Dosage: 20 MILLIGRAM
     Route: 048
     Dates: end: 20130913
  12. DEXAMETHASONE [Suspect]
     Dosage: 8 MILLIGRAM
     Route: 041
     Dates: end: 20130830
  13. ASPIRINE [Concomitant]
     Indication: PRODUCT USED FOR UNKNOWN INDICATION
     Route: 065
     Dates: start: 20120511
  14. INSULIN [Concomitant]
     Indication: PRODUCT USED FOR UNKNOWN INDICATION
     Route: 065
     Dates: start: 20100101
  15. TRAMAL [Concomitant]
     Indication: PRODUCT USED FOR UNKNOWN INDICATION
     Route: 065
     Dates: start: 20130913, end: 20130923
  16. TRAMAL [Concomitant]
     Route: 065
     Dates: start: 20131017, end: 20131022

REACTIONS (3)
  - Meningioma [Not Recovered/Not Resolved]
  - General physical health deterioration [Fatal]
  - Gastric haemorrhage [Recovered/Resolved]
